FAERS Safety Report 23847355 (Version 2)
Quarter: 2024Q4

REPORT INFORMATION
  Report Type: Spontaneous
  Country: FR (occurrence: FR)
  Receive Date: 20240513
  Receipt Date: 20241025
  Transmission Date: 20250115
  Serious: Yes (Congenital Anomaly, Other)
  Sender: CHEPLAPHARM
  Company Number: None

PATIENT
  Age: 0 Year
  Sex: Male
  Weight: 2.7599 kg

DRUGS (5)
  1. OLANZAPINE [Suspect]
     Active Substance: OLANZAPINE
     Dosage: DAILY DOSE: 22.5 MILLIGRAM
     Route: 064
     Dates: start: 20240202
  2. OXAZEPAM [Suspect]
     Active Substance: OXAZEPAM
     Dosage: DAILY DOSE: 30 MILLIGRAM
     Route: 064
     Dates: start: 20231106
  3. TRIMEPRAZINE [Suspect]
     Active Substance: TRIMEPRAZINE
     Dosage: DAILY DOSE: 20 MILLIGRAM
     Route: 064
     Dates: start: 20231106
  4. MIRTAZAPINE [Suspect]
     Active Substance: MIRTAZAPINE
     Dosage: DAILY DOSE: 15 MILLIGRAM
     Route: 064
     Dates: start: 20231106
  5. PIPAMPERONE HYDROCHLORIDE [Suspect]
     Active Substance: PIPAMPERONE HYDROCHLORIDE
     Dosage: DAILY DOSE: 40 MILLIGRAM
     Route: 064
     Dates: start: 20231106

REACTIONS (6)
  - Encephalocele [Not Recovered/Not Resolved]
  - Cerebral ventricle dilatation [Unknown]
  - Microcephaly [Unknown]
  - Posterior fossa syndrome [Unknown]
  - Hydrocephalus [Unknown]
  - Foetal exposure during pregnancy [Not Recovered/Not Resolved]

NARRATIVE: CASE EVENT DATE: 20231106
